FAERS Safety Report 19772331 (Version 3)
Quarter: 2021Q4

REPORT INFORMATION
  Report Type: Report from Study
  Country: US (occurrence: US)
  Receive Date: 20210831
  Receipt Date: 20211105
  Transmission Date: 20220303
  Serious: Yes (Hospitalization, Other)
  Sender: FDA-Public Use
  Company Number: US-SEATTLE GENETICS-2021SGN04441

PATIENT
  Age: 18 Year
  Sex: Female

DRUGS (10)
  1. BRENTUXIMAB VEDOTIN [Suspect]
     Active Substance: BRENTUXIMAB VEDOTIN
     Indication: Anaplastic large cell lymphoma T- and null-cell types
     Dosage: 1.8 MG/KG, Q3WEEKS
     Route: 042
     Dates: start: 20210207
  2. DEXAMETHASONE [Concomitant]
     Active Substance: DEXAMETHASONE
     Dosage: CYCLE 1,2,3,4,5 AND 6
  3. IFOSFAMIDE [Concomitant]
     Active Substance: IFOSFAMIDE
     Dosage: CYCLE 1,3, AND 5
  4. METHOTREXATE [Concomitant]
     Active Substance: METHOTREXATE
     Dosage: CYCLE 1,2,3,4,5 AND 6
  5. CYTARABINE [Concomitant]
     Active Substance: CYTARABINE
     Dosage: CYCLE 1,3, AND 5
  6. ETOPOSIDE [Concomitant]
     Active Substance: ETOPOSIDE
     Dosage: CYCLE 1,3, AND 5
  7. CYCLOPHOSPHAMIDE [Concomitant]
     Active Substance: CYCLOPHOSPHAMIDE
     Dosage: CYCLE 2,4,AND 6
  8. DOXORUBICIN [Concomitant]
     Active Substance: DOXORUBICIN
     Dosage: CYCLE 2,4,AND 6
  9. VINCRISTINE [Concomitant]
     Active Substance: VINCRISTINE
  10. PREDNISONE [Concomitant]
     Active Substance: PREDNISONE

REACTIONS (8)
  - Disease complication [Recovered/Resolved]
  - Oral herpes [Recovered/Resolved]
  - Systemic candida [Recovered/Resolved]
  - Mucosal haemorrhage [Unknown]
  - Shock haemorrhagic [Unknown]
  - Enterobacter infection [Recovered/Resolved]
  - Thrombocytopenia [Recovered/Resolved]
  - Unevaluable event [Unknown]

NARRATIVE: CASE EVENT DATE: 20210624
